FAERS Safety Report 4676967-3 (Version None)
Quarter: 2005Q2

REPORT INFORMATION
  Report Type: 
  Country: None (occurrence: None)
  Receive Date: 20050526
  Receipt Date: 20050516
  Transmission Date: 20051028
  Serious: Yes (Hospitalization)
  Sender: FDA-Public Use
  Company Number: MK200505-0234-1

PATIENT
  Age: 43 Year
  Sex: Female

DRUGS (6)
  1. METHADOSE [Suspect]
     Dosage: PO
     Route: 048
     Dates: end: 20050219
  2. NORVIR [Suspect]
     Indication: HIV INFECTION
     Dosage: 200 MG
     Dates: start: 20020209
  3. EFAVIRENZ [Suspect]
     Indication: HIV INFECTION
     Dosage: 600 MG
     Dates: start: 20040624
  4. FOSAMPRENAVIR [Suspect]
     Indication: HIV INFECTION
     Dosage: 700 MG BID
     Dates: start: 20041115
  5. CLORAZEPATE DIPOTTASIUM [Suspect]
     Dates: end: 20050215
  6. BACTRIM [Suspect]

REACTIONS (11)
  - ASTHENIA [None]
  - DEPRESSED LEVEL OF CONSCIOUSNESS [None]
  - FEELING COLD [None]
  - HEPATIC ENCEPHALOPATHY [None]
  - HEPATIC FAILURE [None]
  - HEPATITIS C [None]
  - PAIN IN EXTREMITY [None]
  - PANCREATIC ENZYMES INCREASED [None]
  - PROTEIN TOTAL DECREASED [None]
  - PROTHROMBIN LEVEL DECREASED [None]
  - SOMNOLENCE [None]
